FAERS Safety Report 7391898-6 (Version None)
Quarter: 2011Q2

REPORT INFORMATION
  Report Type: 
  Country: None (occurrence: None)
  Receive Date: 20110404
  Receipt Date: 20110321
  Transmission Date: 20111010
  Serious: Yes (Hospitalization)
  Sender: FDA-Public Use
  Company Number: NL-MEDIMMUNE-MEDI-0012992

PATIENT
  Sex: Female
  Weight: 2.8 kg

DRUGS (4)
  1. SYNAGIS [Suspect]
     Route: 030
     Dates: start: 20101105, end: 20101105
  2. PNEUMOCOCCAL VACCINE [Concomitant]
     Dates: start: 20101022, end: 20101022
  3. HAEMOPHILUS INFLUENZAE B [Concomitant]
     Dates: start: 20101022, end: 20101022
  4. DIPHTHERIA,PERTUSSIS,TETANUS,POLIOMYELITIS [Concomitant]
     Dates: start: 20101022, end: 20101022

REACTIONS (4)
  - DEPRESSED LEVEL OF CONSCIOUSNESS [None]
  - CYANOSIS [None]
  - MUSCLE SPASMS [None]
  - OXYGEN SATURATION DECREASED [None]
